FAERS Safety Report 18960153 (Version 4)
Quarter: 2021Q3

REPORT INFORMATION
  Report Type: Report from Study
  Country: BR (occurrence: BR)
  Receive Date: 20210302
  Receipt Date: 20210909
  Transmission Date: 20211014
  Serious: Yes (Hospitalization, Disabling, Other)
  Sender: FDA-Public Use
  Company Number: BR-TAKEDA-BR201724236

PATIENT
  Age: 18 Year
  Sex: Male
  Weight: 27 kg

DRUGS (3)
  1. IDURSULFASE [Suspect]
     Active Substance: IDURSULFASE
     Indication: MUCOPOLYSACCHARIDOSIS II
     Dosage: 3VIALS, 1/WEEK
     Route: 042
     Dates: start: 20151218
  2. IDURSULFASE [Suspect]
     Active Substance: IDURSULFASE
     Dosage: 4 DOSAGE FORM, 1/WEEK
     Route: 042
  3. NEULEPTIL [Concomitant]
     Active Substance: PERICIAZINE
     Indication: SLEEP DISORDER
     Dosage: 15 GTT DROPS, QD (PER NIGHT)
     Route: 048

REACTIONS (14)
  - Endotracheal intubation complication [Recovered/Resolved]
  - Procedural complication [Recovered/Resolved]
  - Influenza [Recovered/Resolved]
  - Respiratory failure [Recovered/Resolved]
  - Haemorrhage [Recovered/Resolved]
  - Medication error [Unknown]
  - Muscle atrophy [Recovered/Resolved]
  - Gait inability [Unknown]
  - Secretion discharge [Recovered/Resolved]
  - Mobility decreased [Not Recovered/Not Resolved]
  - Feeding disorder [Recovered/Resolved]
  - Near death experience [Recovered/Resolved]
  - Unevaluable event [Recovered/Resolved]
  - Weight increased [Unknown]

NARRATIVE: CASE EVENT DATE: 202107
